FAERS Safety Report 8114016-5 (Version None)
Quarter: 2012Q1

REPORT INFORMATION
  Report Type: 
  Country: None (occurrence: None)
  Receive Date: 20120203
  Receipt Date: 20120131
  Transmission Date: 20120608
  Serious: Yes (Life-Threatening)
  Sender: FDA-Public Use
  Company Number: IT-ASTRAZENECA-2012SE06631

PATIENT
  Age: 8796 Day
  Sex: Female

DRUGS (1)
  1. PROPOFOL [Suspect]
     Indication: SEDATIVE THERAPY
     Route: 041
     Dates: start: 20120130, end: 20120130

REACTIONS (4)
  - DEPRESSED LEVEL OF CONSCIOUSNESS [None]
  - TACHYPNOEA [None]
  - UNRESPONSIVE TO STIMULI [None]
  - BRONCHOSPASM [None]
